FAERS Safety Report 4801418-5 (Version None)
Quarter: 2005Q4

REPORT INFORMATION
  Report Type: 
  Country: None (occurrence: None)
  Receive Date: 20051011
  Receipt Date: 20051011
  Transmission Date: 20060501
  Serious: Yes (Hospitalization, Other)
  Sender: FDA-Public Use
  Company Number: None

PATIENT
  Sex: Male
  Weight: 107 kg

DRUGS (14)
  1. CYCLOPHOSPHAMIDE [Suspect]
     Indication: ACUTE LYMPHOCYTIC LEUKAEMIA
     Dosage: SEE IMAGE
     Route: 042
     Dates: start: 20050801
  2. ALLOPURINOL [Suspect]
     Dosage: SEE IMAGE
     Route: 048
     Dates: start: 20050801
  3. DAUNORUBICIN HCL [Suspect]
     Dosage: SEE IMAGE
     Route: 042
     Dates: start: 20050801
  4. VINCRISTINE [Suspect]
     Dosage: SEE IMAGE
     Route: 042
     Dates: start: 20050801
  5. DEXAMETHASONE [Suspect]
     Dosage: SEE IMAGE
     Route: 048
     Dates: start: 20050801
  6. L-ASPARIGINASE [Suspect]
     Dosage: SEE IMAGE
     Route: 058
     Dates: start: 20050801
  7. G-CSF [Suspect]
     Dosage: SEE IMAGE
     Route: 058
     Dates: start: 20050801
  8. METHOTREXATE [Suspect]
     Dosage: SEE IMAGE
     Route: 037
     Dates: start: 20050801
  9. CYCLOPHOSPHAMIDE [Suspect]
     Dosage: SEE IMAGE
     Route: 042
     Dates: start: 20050801
  10. CYTARABINE [Suspect]
     Dosage: SEE IMAGE
     Route: 042
     Dates: start: 20050801
  11. L-ASPARAGINASE [Suspect]
     Dosage: SEE IMAGE
     Route: 058
     Dates: start: 20050801
  12. DEXAMETHASONE [Suspect]
     Dosage: SEE IMAGE
     Dates: start: 20050801
  13. G-CSF [Suspect]
     Dosage: SEE IMAGE
     Route: 058
     Dates: start: 20050801
  14. HYDROCORTISONE [Suspect]
     Dosage: SEE IMAGE
     Route: 037
     Dates: start: 20050801

REACTIONS (6)
  - CANDIDIASIS [None]
  - DYSPHAGIA [None]
  - HERPES VIRUS INFECTION [None]
  - MUCOSAL INFLAMMATION [None]
  - NAUSEA [None]
  - VOMITING [None]
